FAERS Safety Report 4677422-7 (Version None)
Quarter: 2005Q2

REPORT INFORMATION
  Report Type: 
  Country: None (occurrence: None)
  Receive Date: 20050531
  Receipt Date: 20050519
  Transmission Date: 20051028
  Serious: Yes (Other)
  Sender: FDA-Public Use
  Company Number: PHBS2005BR07232

PATIENT
  Age: 42 Year
  Sex: Female

DRUGS (1)
  1. FLOTAC [Suspect]
     Dosage: 70 MG, Q12H
     Route: 048
     Dates: start: 20050101, end: 20050101

REACTIONS (5)
  - DIZZINESS [None]
  - FEELING ABNORMAL [None]
  - HALLUCINATION [None]
  - HALLUCINATION, VISUAL [None]
  - OVERDOSE [None]
